FAERS Safety Report 7034368-7 (Version None)
Quarter: 2010Q4

REPORT INFORMATION
  Report Type: 
  Country: None (occurrence: None)
  Receive Date: 20101008
  Receipt Date: 20100927
  Transmission Date: 20110411
  Serious: Yes (Other)
  Sender: FDA-Public Use
  Company Number: CA-JNJFOC-20100308156

PATIENT
  Sex: Female
  Weight: 95 kg

DRUGS (4)
  1. REMICADE [Suspect]
     Indication: CROHN'S DISEASE
     Route: 042
  2. CITALOPRAM HYDROBROMIDE [Concomitant]
  3. FLAGYL [Concomitant]
     Indication: GASTROINTESTINAL DISORDER
  4. CIPRO [Concomitant]
     Indication: GASTROINTESTINAL DISORDER

REACTIONS (4)
  - FEELING HOT [None]
  - HYPERTENSION [None]
  - INFUSION RELATED REACTION [None]
  - PULSE ABNORMAL [None]
